FAERS Safety Report 23657048 (Version 2)
Quarter: 2024Q2

REPORT INFORMATION
  Report Type: Report from Study
  Country: US (occurrence: US)
  Receive Date: 20240321
  Receipt Date: 20240516
  Transmission Date: 20240716
  Serious: Yes (Other)
  Sender: FDA-Public Use
  Company Number: US-HORIZON THERAPEUTICS-HZN-2024-001267

PATIENT

DRUGS (10)
  1. TEPEZZA [Suspect]
     Active Substance: TEPROTUMUMAB-TRBW
     Indication: Toxic goitre
     Dosage: 580 MG, EVERY 3 WEEKS, FIRST INFUSION
     Route: 042
     Dates: start: 20240124
  2. TEPEZZA [Suspect]
     Active Substance: TEPROTUMUMAB-TRBW
     Dosage: 1160 MG, UNK INFUSION
     Route: 042
     Dates: start: 2024
  3. TEPEZZA [Suspect]
     Active Substance: TEPROTUMUMAB-TRBW
     Dosage: UNK, THIRD INFUSION
     Route: 042
     Dates: start: 20240306
  4. TEPEZZA [Suspect]
     Active Substance: TEPROTUMUMAB-TRBW
     Dosage: UNK
     Route: 065
  5. VITAMIN C [Concomitant]
     Active Substance: ASCORBIC ACID
     Route: 048
  6. ATORVASTATIN [Concomitant]
     Active Substance: ATORVASTATIN
     Route: 048
  7. MAGNESIUM [Concomitant]
     Active Substance: MAGNESIUM
     Route: 048
  8. VITAMIN D3 [Concomitant]
     Active Substance: CHOLECALCIFEROL
     Route: 048
  9. STERILE WATER [Concomitant]
     Active Substance: WATER
  10. SODIUM CHLORIDE [Concomitant]
     Active Substance: SODIUM CHLORIDE

REACTIONS (5)
  - Blood pressure increased [Not Recovered/Not Resolved]
  - Poor quality sleep [Not Recovered/Not Resolved]
  - Diarrhoea [Unknown]
  - Headache [Not Recovered/Not Resolved]
  - Blood glucose increased [Unknown]

NARRATIVE: CASE EVENT DATE: 20240121
